FAERS Safety Report 19907650 (Version 1)
Quarter: 2021Q3

REPORT INFORMATION
  Report Type: Spontaneous
  Country: US (occurrence: US)
  Receive Date: 20210930
  Receipt Date: 20210930
  Transmission Date: 20211014
  Serious: No
  Sender: FDA-Public Use
  Company Number: US-B.I. PHARMACEUTICALS,INC./RIDGEFIELD-2021-BI-130100

PATIENT
  Sex: Male

DRUGS (2)
  1. ATROVENT [Suspect]
     Active Substance: IPRATROPIUM BROMIDE
     Indication: BRONCHITIS CHRONIC
     Dosage: 2 PUFFS TWICE A DAY AS NEEDED FOR WHEEZING (SHORTNESS OF BREATH), 2 DOSAGE FORMS.
     Route: 048
  2. ATROVENT [Suspect]
     Active Substance: IPRATROPIUM BROMIDE
     Dosage: 8 TIMES A DAY, OR 2 PUFFS EVERY 6 HOURS, 4 DOSAGE FORMS.

REACTIONS (1)
  - Extra dose administered [Unknown]
